FAERS Safety Report 9902975 (Version 3)
Quarter: 2014Q2

REPORT INFORMATION
  Report Type: Report from Study
  Country: JP (occurrence: JP)
  Receive Date: 20140217
  Receipt Date: 20140402
  Transmission Date: 20141212
  Serious: Yes (Death, Life-Threatening)
  Sender: FDA-Public Use
  Company Number: PHHY2014JP019257

PATIENT
  Age: 81 Year
  Sex: Male
  Weight: 40 kg

DRUGS (3)
  1. EXELON [Suspect]
     Indication: DEMENTIA ALZHEIMER^S TYPE
     Dosage: 4.5 MG, DAILY
     Route: 062
     Dates: start: 20130206, end: 20130309
  2. MAGLAX [Concomitant]
     Dosage: UNK UKN, UNK
     Dates: end: 20130309
  3. DAIKENTYUTO [Concomitant]
     Dosage: UNK UKN, UNK
     Dates: end: 20130309

REACTIONS (2)
  - Pneumococcal sepsis [Fatal]
  - Off label use [Unknown]
